FAERS Safety Report 24627722 (Version 1)
Quarter: 2024Q4

REPORT INFORMATION
  Report Type: Report from Study
  Country: US (occurrence: US)
  Receive Date: 20241116
  Receipt Date: 20241116
  Transmission Date: 20250115
  Serious: Yes (Other)
  Sender: AMGEN
  Company Number: US-AMGEN-USASL2024223189

PATIENT
  Age: 74 Year

DRUGS (2)
  1. UPLIZNA [Suspect]
     Active Substance: INEBILIZUMAB-CDON
     Indication: Product used for unknown indication
     Dosage: UNK
     Route: 040
  2. RITUXIMAB [Suspect]
     Active Substance: RITUXIMAB
     Indication: Product used for unknown indication
     Dosage: UNK
     Route: 065

REACTIONS (8)
  - JC polyomavirus test positive [Unknown]
  - Musculoskeletal discomfort [Unknown]
  - Neck pain [Unknown]
  - Paraesthesia [Unknown]
  - Balance disorder [Unknown]
  - Arthritis [Unknown]
  - Musculoskeletal disorder [Unknown]
  - Drug ineffective [Unknown]

NARRATIVE: CASE EVENT DATE: 20240101
